FAERS Safety Report 13845386 (Version 1)
Quarter: 2017Q3

REPORT INFORMATION
  Report Type: Spontaneous
  Country: AU (occurrence: AU)
  Receive Date: 20170808
  Receipt Date: 20170808
  Transmission Date: 20171127
  Serious: Yes (Other)
  Sender: FDA-Public Use
  Company Number: AU-MYLANLABS-2017M1048605

PATIENT

DRUGS (11)
  1. METHOTREXATE. [Concomitant]
     Active Substance: METHOTREXATE
     Indication: SARCOIDOSIS
     Dosage: INCREASED TO 25MG PER WEEK
     Route: 048
  2. PREDNISOLONE. [Suspect]
     Active Substance: PREDNISOLONE
     Dosage: INCREASE IN THE DOSE FOLLOWED BY 10MG/DAY PRIOR TO THE ADR
     Route: 048
  3. METHOTREXATE. [Concomitant]
     Active Substance: METHOTREXATE
     Route: 048
  4. MYCOPHENOLATE [Concomitant]
     Active Substance: MYCOPHENOLIC ACID
     Indication: SARCOIDOSIS
     Route: 048
  5. DEXAMETHASONE. [Suspect]
     Active Substance: DEXAMETHASONE
     Indication: SARCOIDOSIS
     Route: 061
  6. PREDNISOLONE. [Suspect]
     Active Substance: PREDNISOLONE
     Dosage: 10MG/DAY
     Route: 048
  7. TRIAMCINOLONE [Suspect]
     Active Substance: TRIAMCINOLONE
     Indication: CYSTOID MACULAR OEDEMA
     Dosage: 40MG/ML
     Route: 050
  8. INFLIXIMAB [Concomitant]
     Active Substance: INFLIXIMAB
     Indication: SARCOIDOSIS
     Dosage: SIX WEEKLY
     Route: 050
  9. METHYLPREDNISOLONE. [Suspect]
     Active Substance: METHYLPREDNISOLONE
     Indication: SARCOIDOSIS
     Dosage: 1G DAILY
     Route: 042
  10. PREDNISOLONE. [Suspect]
     Active Substance: PREDNISOLONE
     Indication: SARCOIDOSIS
     Dosage: 80MG DAILY TITRATED TO BELOW 50MG DAILY
     Route: 048
  11. PREDNISOLONE. [Suspect]
     Active Substance: PREDNISOLONE
     Dosage: BELOW 50MG DAILY FOLLOWED BY INCREASE IN THE DOSE
     Route: 048

REACTIONS (1)
  - Intraocular pressure increased [Recovering/Resolving]
